FAERS Safety Report 9841974 (Version 1)
Quarter: 2014Q1

REPORT INFORMATION
  Report Type: Spontaneous
  Country: US (occurrence: US)
  Receive Date: 20140124
  Receipt Date: 20140124
  Transmission Date: 20141002
  Serious: No
  Sender: FDA-Public Use
  Company Number: US-BAUSCH-BL-2013-006830

PATIENT
  Age: 82 Year
  Sex: Female
  Weight: 54.48 kg

DRUGS (7)
  1. PROLENSA (BROMFENAC OPHTHALMIC SOLUTION) 0.07% [Suspect]
     Indication: CATARACT OPERATION
     Dosage: UNKNOWN DOSAGE; LEFT EYE; OPHTHALMIC
     Route: 047
     Dates: start: 20131011
  2. PROLENSA (BROMFENAC OPHTHALMIC SOLUTION) 0.07% [Suspect]
     Dosage: ONE DROP; RIGHT EYE; ONCE DAILY
     Route: 047
     Dates: start: 20131025, end: 201311
  3. LOTEMAX (LOTEPREDNOL ETABONATE OPHTHALMIC GEL 0.5%) [Suspect]
     Indication: CATARACT OPERATION
     Dosage: UNKNOWN DOSAGE; OPHTHALMIC
     Route: 047
     Dates: start: 20131011
  4. LOTEMAX (LOTEPREDNOL ETABONATE OPHTHALMIC GEL 0.5%) [Suspect]
     Dosage: UNKNOWN DOSAGE; RIGHT EYE; FOUR TIMES A DAY
     Route: 047
     Dates: start: 20131025
  5. LOTEMAX (LOTEPREDNOL ETABONATE OPHTHALMIC GEL 0.5%) [Suspect]
     Dosage: UNKNOWN DOSAGE; RIGHT EYE; THREE TIMES A DAY
     Route: 047
  6. PULMICORT [Concomitant]
  7. XOPENEX [Concomitant]

REACTIONS (2)
  - Swelling face [Recovering/Resolving]
  - Pruritus [Recovering/Resolving]
